FAERS Safety Report 4633270-5 (Version None)
Quarter: 2005Q2

REPORT INFORMATION
  Report Type: 
  Country: None (occurrence: None)
  Receive Date: 20050408
  Receipt Date: 20050329
  Transmission Date: 20051028
  Serious: Yes (Hospitalization, Other)
  Sender: FDA-Public Use
  Company Number: 211388

PATIENT
  Age: 58 Year
  Sex: Male
  Weight: 66 kg

DRUGS (8)
  1. MABTHERA (RITUXIMAB) CONC FOR SOLUTION FOR INFUSION [Suspect]
     Indication: MANTLE CELL LYMPHOMA
     Dosage: SEE IMAGE, INTRAVENOUS
     Route: 042
     Dates: start: 20040201, end: 20040401
  2. MABTHERA (RITUXIMAB) CONC FOR SOLUTION FOR INFUSION [Suspect]
     Indication: MANTLE CELL LYMPHOMA
     Dosage: SEE IMAGE, INTRAVENOUS
     Route: 042
     Dates: start: 20041215
  3. THALIDOMIDE (THALIDOMIDE) [Suspect]
     Indication: MANTLE CELL LYMPHOMA
     Dosage: 100 MG, QD, ORAL
     Route: 048
     Dates: start: 20041215
  4. BACTRIM FORTEM (TRIMETHOPRIM, SULFAMETHOXAZOLE) [Suspect]
     Indication: IMMUNOSUPPRESSANT DRUG THERAPY
     Dosage: 3 TABLET, 1/WEEK, ORAL
     Route: 048
     Dates: start: 20040927, end: 20050102
  5. ALLOPURINOL [Suspect]
     Indication: HYPERURICAEMIA
     Dosage: 200 MG, QD, ORAL
     Route: 048
     Dates: start: 20041211, end: 20041215
  6. PENICILLIN V [Suspect]
     Indication: IMMUNOSUPPRESSANT DRUG THERAPY
     Dates: start: 20040927, end: 20050103
  7. VALACYCLOVIR HCL [Suspect]
     Indication: IMMUNOSUPPRESSANT DRUG THERAPY
     Dosage: 2 TABLET, QD, ORAL
     Route: 048
     Dates: start: 20040927
  8. BACTRIM DS [Concomitant]

REACTIONS (4)
  - BONE MARROW DISORDER [None]
  - DRUG INEFFECTIVE [None]
  - NEUTROPENIA [None]
  - THROMBOCYTOPENIA [None]
